FAERS Safety Report 5073703-6 (Version None)
Quarter: 2006Q3

REPORT INFORMATION
  Report Type: 
  Country: None (occurrence: None)
  Receive Date: 20060808
  Receipt Date: 20050419
  Transmission Date: 20061208
  Serious: No
  Sender: FDA-Public Use
  Company Number: US-AMGEN-US127677

PATIENT
  Sex: Male

DRUGS (3)
  1. ARANESP [Suspect]
     Indication: RENAL FAILURE CHRONIC
     Route: 058
     Dates: start: 20041101, end: 20050201
  2. EPOGEN [Suspect]
     Indication: RENAL FAILURE CHRONIC
     Dates: start: 20050201
  3. PROCRIT [Suspect]
     Indication: RENAL FAILURE CHRONIC
     Route: 058
     Dates: start: 20040316, end: 20041101

REACTIONS (2)
  - ABSCESS [None]
  - THERAPEUTIC RESPONSE DECREASED [None]
